FAERS Safety Report 4810835-9 (Version None)
Quarter: 2005Q4

REPORT INFORMATION
  Report Type: 
  Country: None (occurrence: None)
  Receive Date: 20051024
  Receipt Date: 20051011
  Transmission Date: 20060501
  Serious: Yes (Hospitalization)
  Sender: FDA-Public Use
  Company Number: 2005140824

PATIENT
  Age: 65 Year
  Sex: Male

DRUGS (7)
  1. ZYVOX [Suspect]
     Indication: INFECTION
     Dosage: INTRAVENOUS; 1200 MG (600 MG, BID INTERVAL: EVERY DAY) ORAL
     Route: 042
     Dates: start: 20050101, end: 20050101
  2. ZYVOX [Suspect]
     Indication: INFECTION
     Dosage: INTRAVENOUS; 1200 MG (600 MG, BID INTERVAL: EVERY DAY) ORAL
     Route: 042
     Dates: start: 20050906, end: 20050901
  3. ZYVOX [Suspect]
     Indication: INFECTION
     Dosage: 1200 MG (600 MG, 2 IN 1 D), ORAL
     Route: 048
     Dates: start: 20050906, end: 20050901
  4. CHEMOTHERAPY NOS (CHEMOTHERAPY NOS) [Concomitant]
  5. GABAPENTIN [Concomitant]
  6. PERCOCET [Concomitant]
  7. EFFEXOR [Concomitant]

REACTIONS (3)
  - INFLUENZA [None]
  - MALAISE [None]
  - WEIGHT DECREASED [None]
